FAERS Safety Report 4922074-1 (Version None)
Quarter: 2006Q1

REPORT INFORMATION
  Report Type: 
  Country: None (occurrence: None)
  Receive Date: 20060222
  Receipt Date: 20060222
  Transmission Date: 20060701
  Serious: Yes (Hospitalization)
  Sender: FDA-Public Use
  Company Number: None

PATIENT
  Age: 73 Year
  Sex: Female
  Weight: 49 kg

DRUGS (10)
  1. DIGOXIN [Suspect]
     Indication: CARDIAC DISORDER
     Dosage: 0.25 MG PO DAILY  CHRONIC
     Route: 048
  2. LASIX [Concomitant]
  3. DITROPAN XL [Concomitant]
  4. NEXIUM [Concomitant]
  5. LANOXIN [Concomitant]
  6. BENICAR [Concomitant]
  7. ZETIA [Concomitant]
  8. SYNTHROID [Concomitant]
  9. K-DUR 10 [Concomitant]
  10. ASPIRIN [Concomitant]

REACTIONS (6)
  - BLOOD POTASSIUM INCREASED [None]
  - CHEST DISCOMFORT [None]
  - DIARRHOEA [None]
  - NAUSEA [None]
  - THERAPEUTIC AGENT TOXICITY [None]
  - VOMITING [None]
